FAERS Safety Report 14360275 (Version 3)
Quarter: 2025Q2

REPORT INFORMATION
  Report Type: Spontaneous
  Country: FR (occurrence: FR)
  Receive Date: 20180106
  Receipt Date: 20250426
  Transmission Date: 20250717
  Serious: Yes (Hospitalization, Other)
  Sender: AUROBINDO
  Company Number: FR-AUROBINDO-AUR-APL-2018-001077

PATIENT
  Age: 30 Year
  Sex: Female

DRUGS (1)
  1. PREDNISONE [Suspect]
     Active Substance: PREDNISONE
     Indication: Antinuclear antibody positive
     Dosage: 0.3 MG/KG, ONCE A DAY
     Route: 065

REACTIONS (7)
  - Guillain-Barre syndrome [Recovering/Resolving]
  - Cytomegalovirus infection [Recovering/Resolving]
  - Facial paralysis [Recovering/Resolving]
  - Dysphagia [Recovering/Resolving]
  - Foetal death [Unknown]
  - Maternal exposure during pregnancy [Recovering/Resolving]
  - Exposure during pregnancy [Unknown]
